FAERS Safety Report 5464304-6 (Version None)
Quarter: 2007Q3

REPORT INFORMATION
  Report Type: 
  Country: None (occurrence: None)
  Receive Date: 20070921
  Receipt Date: 20070914
  Transmission Date: 20080115
  Serious: Yes (Other)
  Sender: FDA-Public Use
  Company Number: B0487848A

PATIENT
  Age: 10 Year
  Sex: Male

DRUGS (2)
  1. VENTOLIN [Suspect]
     Indication: ASTHMATIC CRISIS
     Dosage: 10PUFF SEE DOSAGE TEXT
     Route: 055
     Dates: start: 20070913
  2. OXYGEN [Concomitant]
     Indication: ASTHMATIC CRISIS
     Dates: start: 20070913

REACTIONS (1)
  - AGGRESSION [None]
